FAERS Safety Report 4374972-8 (Version None)
Quarter: 2004Q2

REPORT INFORMATION
  Report Type: 
  Country: None (occurrence: None)
  Receive Date: 20040603
  Receipt Date: 20031109
  Transmission Date: 20050107
  Serious: Yes (Hospitalization)
  Sender: FDA-Public Use
  Company Number: 200319711US

PATIENT

DRUGS (1)
  1. LOVENOX [Suspect]
     Indication: ANGINA UNSTABLE
     Dosage: IV
     Route: 042

REACTIONS (1)
  - HAEMORRHAGE INTRACRANIAL [None]
